FAERS Safety Report 19677682 (Version 11)
Quarter: 2022Q3

REPORT INFORMATION
  Report Type: Report from Study
  Country: MX (occurrence: MX)
  Receive Date: 20210809
  Receipt Date: 20220831
  Transmission Date: 20221027
  Serious: Yes (Other)
  Sender: FDA-Public Use
  Company Number: NVSC2021MX179037

PATIENT
  Age: 40 Year
  Sex: Female

DRUGS (5)
  1. GILENYA [Suspect]
     Active Substance: FINGOLIMOD HYDROCHLORIDE
     Indication: Multiple sclerosis
     Dosage: 0.5 MG, QD
     Route: 048
     Dates: start: 202103
  2. GILENYA [Suspect]
     Active Substance: FINGOLIMOD HYDROCHLORIDE
     Dosage: 0.5 MG, QD
     Route: 048
     Dates: start: 20210301
  3. ROSEL [Concomitant]
     Indication: Influenza
     Dosage: UNK
     Route: 048
     Dates: start: 20220201
  4. BACLOFEN [Concomitant]
     Active Substance: BACLOFEN
     Indication: Muscle spasms
     Dosage: 10 MG (1/4 TABLET)
     Route: 048
     Dates: start: 20210525, end: 20210817
  5. BACLOFEN [Concomitant]
     Active Substance: BACLOFEN
     Indication: Limb discomfort
     Dosage: 10 MG
     Route: 048
     Dates: start: 202108, end: 20220120

REACTIONS (2)
  - Uterine polyp [Not Recovered/Not Resolved]
  - Heavy menstrual bleeding [Recovering/Resolving]

NARRATIVE: CASE EVENT DATE: 20210701
